FAERS Safety Report 5189985-6 (Version None)
Quarter: 2006Q4

REPORT INFORMATION
  Report Type: 
  Country: None (occurrence: None)
  Receive Date: 20061215
  Receipt Date: 20061204
  Transmission Date: 20070319
  Serious: Yes (Hospitalization)
  Sender: FDA-Public Use
  Company Number: 2006148885

PATIENT
  Age: 93 Year
  Sex: Female

DRUGS (10)
  1. FLUCONAZOLE [Suspect]
     Dosage: 50 MG/5 ML, ORAL
     Route: 048
     Dates: start: 20060925, end: 20061003
  2. ASPIRIN [Suspect]
     Dosage: 300 MG (300 MG), ORAL
     Route: 048
     Dates: end: 20061003
  3. METOCLOPRAMIDE [Suspect]
     Dosage: 15 MG, ORAL
     Route: 048
     Dates: start: 20060918, end: 20061003
  4. ACETAMINOPHEN [Suspect]
     Dosage: 3000 MG (500 MG), ORAL
     Route: 048
     Dates: end: 20061003
  5. NOROXIN [Suspect]
     Dosage: 800 MG (400 MG), ORAL
     Route: 048
     Dates: start: 20061002, end: 20061003
  6. CITALOPRAM HYDROBROMIDE [Suspect]
     Dosage: 20 MG (20 MG), ORAL
     Route: 048
     Dates: start: 20060925, end: 20061003
  7. FUROSEMIDE [Concomitant]
  8. BETAHISTINE DIHYDROCHLORIDE (BETAHISTINE HYDROCHLORIDE) [Concomitant]
  9. RAMIPRIL [Concomitant]
  10. TRIMETAZIDINE DIHYDROCHLORIDE (TRIMETAZIDINE HYDROCHLORIDE) [Concomitant]

REACTIONS (3)
  - GASTRIC ULCER [None]
  - HAEMATEMESIS [None]
  - THROMBOSIS [None]
